FAERS Safety Report 9582417 (Version 1)
Quarter: 2013Q4

REPORT INFORMATION
  Report Type: Spontaneous
  Country: US (occurrence: US)
  Receive Date: 20131002
  Receipt Date: 20131002
  Transmission Date: 20140711
  Serious: No
  Sender: FDA-Public Use
  Company Number: US-AMGEN-USASP2013040100

PATIENT
  Age: 47 Year
  Sex: Female

DRUGS (2)
  1. ENBREL [Suspect]
     Indication: PSORIASIS
     Dosage: 50 MG, BIWEEKLY FOR TWO MONTHS, THEN ONCE A WEEK
     Route: 058
  2. VECTICAL [Concomitant]
     Dosage: UNK

REACTIONS (3)
  - Injection site bruising [Unknown]
  - Injection site reaction [Unknown]
  - Injection site erythema [Unknown]
